FAERS Safety Report 10794103 (Version 2)
Quarter: 2015Q3

REPORT INFORMATION
  Report Type: Spontaneous
  Country: US (occurrence: US)
  Receive Date: 20150213
  Receipt Date: 20150819
  Transmission Date: 20151125
  Serious: No
  Sender: FDA-Public Use
  Company Number: US-GILEAD-2015-0137150

PATIENT
  Age: 65 Year
  Sex: Female

DRUGS (2)
  1. LETAIRIS [Suspect]
     Active Substance: AMBRISENTAN
     Indication: PRODUCT USED FOR UNKNOWN INDICATION
     Dosage: 5 MG, QD
     Route: 065
     Dates: start: 20130926
  2. REVATIO [Concomitant]
     Active Substance: SILDENAFIL CITRATE

REACTIONS (5)
  - Feeling of body temperature change [Unknown]
  - Mobility decreased [Unknown]
  - Nausea [Unknown]
  - Asthenia [Unknown]
  - Abdominal pain [Unknown]
